FAERS Safety Report 18806982 (Version 1)
Quarter: 2021Q1

REPORT INFORMATION
  Report Type: Spontaneous
  Country: US (occurrence: US)
  Receive Date: 20210128
  Receipt Date: 20210128
  Transmission Date: 20210419
  Serious: Yes (Other)
  Sender: FDA-Public Use
  Company Number: US-ENDO PHARMACEUTICALS INC-2020-003345

PATIENT
  Sex: Female

DRUGS (1)
  1. RHEUMATREX [Suspect]
     Active Substance: METHOTREXATE SODIUM
     Indication: PSORIATIC ARTHROPATHY
     Dosage: UNK UNKNOWN, UNKNOWN
     Route: 048
     Dates: end: 201909

REACTIONS (5)
  - Feeling abnormal [Unknown]
  - Ulcer haemorrhage [Unknown]
  - Fine motor skill dysfunction [Unknown]
  - Alopecia [Unknown]
  - Balance disorder [Unknown]
